FAERS Safety Report 6143997-4 (Version None)
Quarter: 2009Q2

REPORT INFORMATION
  Report Type: 
  Country: None (occurrence: None)
  Receive Date: 20090406
  Receipt Date: 20090325
  Transmission Date: 20091009
  Serious: Yes (Other)
  Sender: FDA-Public Use
  Company Number: BR-ALLERGAN-0904204US

PATIENT

DRUGS (3)
  1. TRIAMCINOLONE ACETONIDE 8% SUS-EYE [Suspect]
     Indication: CORNEAL GRAFT REJECTION
     Dosage: 20 MG, SINGLE
     Route: 057
  2. PREDNISOLONE ACETATE 1.0% SUS [Suspect]
     Indication: CORNEAL GRAFT REJECTION
     Dosage: 1 GTT, Q1HR
     Route: 047
  3. PREDNISOLONE ACETATE 1.0% SUS [Suspect]
     Dosage: 1 GTT, PRN
     Route: 047

REACTIONS (3)
  - CONJUNCTIVAL DEPOSIT [None]
  - CORNEAL GRAFT REJECTION [None]
  - GLAUCOMA [None]
